FAERS Safety Report 7743977-9 (Version None)
Quarter: 2011Q3

REPORT INFORMATION
  Report Type: 
  Country: None (occurrence: None)
  Receive Date: 20110912
  Receipt Date: 20110906
  Transmission Date: 20111222
  Serious: Yes (Hospitalization)
  Sender: FDA-Public Use
  Company Number: US-B.I. PHARMACEUTICALS,INC./RIDGEFIELD-2011-BP-18510BP

PATIENT
  Age: 68 Year
  Sex: Male
  Weight: 125.5 kg

DRUGS (7)
  1. POTASSIUM CHLORIDE [Concomitant]
     Dosage: 20 MEQ
  2. PRADAXA [Suspect]
     Indication: ATRIAL FIBRILLATION
     Dosage: 300 MG
     Route: 048
     Dates: start: 20110609
  3. ATENOLOL [Concomitant]
     Dosage: 100 MG
  4. FUROSEMIDE [Concomitant]
     Dosage: 20 MG
  5. CARDIZEM CD [Concomitant]
     Dosage: 180 MG
  6. LIPITOR [Concomitant]
     Dosage: 40 MG
  7. DIOVAN [Concomitant]
     Dosage: 320 MG

REACTIONS (4)
  - TRANSIENT ISCHAEMIC ATTACK [None]
  - CEREBROVASCULAR ACCIDENT [None]
  - ASTHENIA [None]
  - VIITH NERVE PARALYSIS [None]
